FAERS Safety Report 9108287 (Version 1)
Quarter: 2013Q1

REPORT INFORMATION
  Report Type: Report from Study
  Country: CA (occurrence: CA)
  Receive Date: 20130222
  Receipt Date: 20130222
  Transmission Date: 20140127
  Serious: Yes (Hospitalization)
  Sender: FDA-Public Use
  Company Number: CA-ABBOTT-13P-028-1052834-00

PATIENT
  Age: 70 Year
  Sex: Female
  Weight: 81.72 kg

DRUGS (6)
  1. HUMIRA [Suspect]
     Indication: CROHN^S DISEASE
     Route: 058
     Dates: start: 20121121
  2. NOVO-GESIC [Concomitant]
     Indication: PAIN
     Route: 048
  3. VITAMIN B12 [Concomitant]
     Indication: VITAMIN B12 DECREASED
     Route: 058
  4. GRAVOL [Concomitant]
     Indication: NAUSEA
     Route: 048
  5. GRAVOL [Concomitant]
     Indication: PAIN
  6. OMEPRAZOLE [Concomitant]
     Indication: DYSPEPSIA

REACTIONS (2)
  - Rectal haemorrhage [Recovering/Resolving]
  - Diarrhoea [Recovering/Resolving]
